FAERS Safety Report 4801635-4 (Version None)
Quarter: 2005Q4

REPORT INFORMATION
  Report Type: 
  Country: None (occurrence: None)
  Receive Date: 20051018
  Receipt Date: 20051006
  Transmission Date: 20060501
  Serious: Yes (Death, Hospitalization)
  Sender: FDA-Public Use
  Company Number: 200513706EU

PATIENT
  Age: 55 Year
  Sex: Male

DRUGS (8)
  1. HYDROCORTISONE [Suspect]
     Indication: DRUG USE FOR UNKNOWN INDICATION
  2. KINERET [Suspect]
     Indication: RHEUMATOID ARTHRITIS
     Route: 058
     Dates: start: 20050311, end: 20050322
  3. FOLIC ACID [Concomitant]
  4. ATORVASTATIN [Concomitant]
     Dosage: DOSE UNIT: UNITS
  5. PERINDOPRIL [Concomitant]
  6. METHOTREXATE [Concomitant]
     Route: 048
  7. CELECOXIB [Concomitant]
     Route: 048
     Dates: start: 20050602
  8. WARFARIN [Concomitant]
     Route: 048

REACTIONS (6)
  - ARM AMPUTATION [None]
  - BLISTER [None]
  - GANGRENE [None]
  - NECROTISING FASCIITIS [None]
  - RENAL FAILURE [None]
  - STREPTOCOCCAL INFECTION [None]
